FAERS Safety Report 8758503 (Version 1)
Quarter: 2012Q4

REPORT INFORMATION
  Report Type: 
  Country: US (occurrence: US)
  Receive Date: 20120829
  Receipt Date: 20120829
  Transmission Date: 20130627
  Serious: No
  Sender: FDA-Public Use
  Company Number: US-JNJFOC-20120808579

PATIENT
  Age: 38 None
  Sex: Female
  Weight: 101.61 kg

DRUGS (4)
  1. DURAGESIC [Suspect]
     Indication: PAIN
     Route: 062
     Dates: start: 2002, end: 2009
  2. DURAGESIC [Suspect]
     Indication: PAIN
     Route: 062
     Dates: start: 20120814
  3. DURAGESIC [Suspect]
     Indication: PAIN
     Route: 062
     Dates: start: 2009, end: 2009
  4. FENTANYL [Suspect]
     Indication: PAIN
     Route: 062

REACTIONS (4)
  - Drug dose omission [Recovered/Resolved]
  - Wrong technique in drug usage process [Recovered/Resolved]
  - Pain [Not Recovered/Not Resolved]
  - Product quality issue [Unknown]
